FAERS Safety Report 4630861-2 (Version None)
Quarter: 2005Q2

REPORT INFORMATION
  Report Type: 
  Country: None (occurrence: None)
  Receive Date: 20050404
  Receipt Date: 20050404
  Transmission Date: 20051028
  Serious: Yes (Life-Threatening, Hospitalization)
  Sender: FDA-Public Use
  Company Number: None

PATIENT
  Age: 40 Year
  Sex: Female
  Weight: 58.514 kg

DRUGS (14)
  1. CAMPTOSAR [Suspect]
     Indication: RECTAL CANCER
     Dosage: 293 MG IVPB
     Route: 040
     Dates: start: 20050111
  2. LEUCOVORIN CALCIUM [Suspect]
     Indication: RECTAL CANCER
     Dosage: 652 MG IVPB
     Route: 040
     Dates: start: 20050111
  3. FLUOROURACIL [Suspect]
     Dosage: 652 MG IVP
     Route: 042
     Dates: start: 20050111
  4. FLUOROURACIL [Suspect]
     Indication: RECTAL CANCER
     Dosage: 3912 MG IV PUMP 46 H
     Route: 040
     Dates: start: 20050111, end: 20050113
  5. ALOXI [Suspect]
     Indication: ANTIEMETIC SUPPORTIVE CARE
     Dosage: 0.25 IV PB
     Route: 040
     Dates: start: 20050111
  6. ALOXI [Suspect]
     Indication: PREMEDICATION
     Dosage: 0.25 IV PB
     Route: 040
     Dates: start: 20050111
  7. DECADRON [Suspect]
     Indication: ANTIEMETIC SUPPORTIVE CARE
     Dosage: 20 MG IVPB
     Route: 040
     Dates: start: 20050111
  8. DECADRON [Suspect]
     Indication: PREMEDICATION
     Dosage: 20 MG IVPB
     Route: 040
     Dates: start: 20050111
  9. ATIVAN [Concomitant]
  10. POTASSIUM CHLORIDE [Concomitant]
  11. NS [Concomitant]
  12. ZOFRAN [Concomitant]
  13. MORPHINE [Concomitant]
  14. PHENERGAN [Concomitant]

REACTIONS (15)
  - ARTHRALGIA [None]
  - BLOOD POTASSIUM DECREASED [None]
  - BRADYCARDIA [None]
  - CHEST X-RAY ABNORMAL [None]
  - EYE ROLLING [None]
  - HEADACHE [None]
  - HYPOTENSION [None]
  - HYPOXIA [None]
  - LOSS OF CONSCIOUSNESS [None]
  - LUNG DISORDER [None]
  - NAUSEA [None]
  - NECK PAIN [None]
  - RESPIRATORY RATE DECREASED [None]
  - TACHYCARDIA [None]
  - VOMITING [None]
